FAERS Safety Report 9177490 (Version 3)
Quarter: 2013Q2

REPORT INFORMATION
  Report Type: Spontaneous
  Country: GB (occurrence: GB)
  Receive Date: 20130321
  Receipt Date: 20130416
  Transmission Date: 20140414
  Serious: Yes (Other)
  Sender: FDA-Public Use
  Company Number: PHFR2013GB001749

PATIENT
  Sex: Female

DRUGS (9)
  1. CLOZARIL [Suspect]
     Indication: SCHIZOPHRENIA
     Route: 048
     Dates: start: 20051219
  2. CLOZARIL [Suspect]
     Dosage: 300 MG, DAILY
     Route: 048
     Dates: start: 20130314
  3. AMILORIDE [Concomitant]
     Dosage: 10 MG, DAILY
     Route: 048
  4. SENNA [Concomitant]
     Dosage: 7.5 MG, DAILY
     Route: 048
  5. TOLTERODINE [Concomitant]
     Dosage: 4 MG, DAILY
     Route: 048
  6. SIMVASTATIN [Concomitant]
     Dosage: 20 MG, DAILY
     Route: 048
  7. LANSOPRAZOLE [Concomitant]
     Dosage: 30 MG, DAILY
     Route: 048
  8. FLUOXETINE [Concomitant]
     Dosage: 20 MG, DAILY
     Route: 048
  9. ALFACALCIDOL [Concomitant]
     Dosage: 0.25 MG, DAILY
     Route: 048

REACTIONS (3)
  - Cardiac valve disease [Unknown]
  - Lower respiratory tract infection [Recovered/Resolved]
  - Antipsychotic drug level increased [Unknown]
